FAERS Safety Report 9440423 (Version 2)
Quarter: 2013Q3

REPORT INFORMATION
  Report Type: Spontaneous
  Country: US (occurrence: US)
  Receive Date: 20130805
  Receipt Date: 20130919
  Transmission Date: 20140515
  Serious: Yes (Death)
  Sender: FDA-Public Use
  Company Number: US-VERTEX PHARMACEUTICALS INC-2013-008477

PATIENT
  Sex: 0

DRUGS (5)
  1. INCIVEK [Suspect]
     Indication: HEPATITIS C
     Dosage: UNK
  2. PEGINTERFERON ALFA-2A [Suspect]
     Indication: HEPATITIS C
  3. RIBAVIRIN [Suspect]
     Indication: HEPATITIS C
  4. TACROLIMUS [Concomitant]
  5. CYCLOSPORINE [Concomitant]

REACTIONS (4)
  - Liver transplant rejection [Fatal]
  - Treatment noncompliance [Unknown]
  - Off label use [Unknown]
  - Drug ineffective [Unknown]
